FAERS Safety Report 4396853-6 (Version None)
Quarter: 2004Q2

REPORT INFORMATION
  Report Type: 
  Country: None (occurrence: None)
  Receive Date: 20040621
  Receipt Date: 20040315
  Transmission Date: 20050107
  Serious: Yes (Other)
  Sender: FDA-Public Use
  Company Number: USA-2004-0013863

PATIENT
  Age: 26 Year
  Sex: Male

DRUGS (5)
  1. OXYCONTIN [Suspect]
     Dosage: MG
  2. MARIJUANA (CANNIBAS) [Suspect]
  3. ECSTASY (METHYLENDIOXYAMPHETAMINE) [Suspect]
  4. COCAINE (COCAINE) [Suspect]
  5. FLEXERIL [Suspect]

REACTIONS (1)
  - POLYSUBSTANCE ABUSE [None]
